FAERS Safety Report 10313526 (Version 2)
Quarter: 2014Q3

REPORT INFORMATION
  Report Type: Report from Study
  Country: CA (occurrence: CA)
  Receive Date: 20140718
  Receipt Date: 20140721
  Transmission Date: 20150326
  Serious: Yes (Other)
  Sender: FDA-Public Use
  Company Number: CA-ROCHE-1436426

PATIENT
  Age: 38 Year
  Sex: Female
  Weight: 47.76 kg

DRUGS (1)
  1. RITUXIMAB [Suspect]
     Active Substance: RITUXIMAB
     Indication: THROMBOTIC THROMBOCYTOPENIC PURPURA
     Route: 065

REACTIONS (2)
  - Tremor [Recovered/Resolved]
  - Drooling [Recovered/Resolved]

NARRATIVE: CASE EVENT DATE: 20110620
